FAERS Safety Report 7527455-8 (Version None)
Quarter: 2011Q2

REPORT INFORMATION
  Report Type: 
  Country: None (occurrence: None)
  Receive Date: 20110512
  Receipt Date: 20110223
  Transmission Date: 20111010
  Serious: Yes (Other)
  Sender: FDA-Public Use
  Company Number: 1000018513

PATIENT
  Age: 66 Year
  Weight: 57.15 kg

DRUGS (13)
  1. SAVELLA [Suspect]
     Indication: FIBROMYALGIA
     Dosage: 25 MG (12.5 MG, 2 IN 1 D), ORAL
     Route: 048
     Dates: start: 20101011, end: 20101229
  2. TEMAZEPAM [Concomitant]
  3. ACTONEL (RISEDRONATE SODIUM) (35 MILLIGRAM, TABLETS) (RISEDRONATE SODI [Concomitant]
  4. CLONAZEPAM (CLONAZEPAM) (0.5 MILLIGRAM, TABLETS) (CLONAZEPAM) [Concomitant]
  5. GLUCOSAMINE/ CHONDROITIN (GLUCOSAMINE/CHONDROITIN) (GLUCOSAMINE/CHONDR [Concomitant]
  6. SAVELLA [Suspect]
     Indication: FIBROMYALGIA
     Dosage: 50 MG (25 MG, 2 IN 1 D), ORAL
     Route: 048
     Dates: start: 20101230, end: 20110112
  7. CYCLOBENZAPRINE (CYCLOBENZAPRINE) (10 MILLIGRAM, TABLETS) (CYCLOBENZAP [Concomitant]
  8. LISINOPRIL [Concomitant]
  9. DILTIAZEM (DILTIAZEM HYDROCHLORIDE) (240 MILLIGRAM, CAPSULES) (DILTIAZ [Concomitant]
  10. CARVEDILOL (CARVEDILOL) (3.125 MILLIGRAM, TABLETS) (CARVEDILOL) [Concomitant]
  11. LEVOTHROID (LEVOTHYROXINE SODIUM) (50 MICROGRAM, TABLETS) (LEVOTHYROXI [Concomitant]
  12. LIDODERM (LIDOCAINE) (5 PERCENT, POULTICE OR PATCH) (LIDOCAINE) [Concomitant]
  13. TRAMADOL (TRAMADOL) (50 MILLIGRAM, TABLETS) (TRAMADOL) [Concomitant]

REACTIONS (2)
  - SUICIDAL IDEATION [None]
  - INSOMNIA [None]
